FAERS Safety Report 19181864 (Version 1)
Quarter: 2021Q2

REPORT INFORMATION
  Report Type: Spontaneous
  Country: GB (occurrence: GB)
  Receive Date: 20210427
  Receipt Date: 20210427
  Transmission Date: 20210717
  Serious: Yes (Hospitalization, Other)
  Sender: FDA-Public Use
  Company Number: GB-009507513-2104GBR006639

PATIENT
  Age: 50 Year
  Sex: Male

DRUGS (1)
  1. DELSTRIGO [Suspect]
     Active Substance: DORAVIRINE\LAMIVUDINE\TENOFOVIR DISOPROXIL FUMARATE
     Dosage: 1 TABLET ONCE PER DAY
     Route: 048

REACTIONS (4)
  - Critical illness [Unknown]
  - Product dose omission issue [Unknown]
  - Loss of consciousness [Unknown]
  - Endotracheal intubation [Unknown]

NARRATIVE: CASE EVENT DATE: 20210417
